FAERS Safety Report 16683813 (Version 2)
Quarter: 2020Q3

REPORT INFORMATION
  Report Type: Spontaneous
  Country: US (occurrence: US)
  Receive Date: 20190808
  Receipt Date: 20200720
  Transmission Date: 20201102
  Serious: Yes (Other)
  Sender: FDA-Public Use
  Company Number: US-JNJFOC-20190800477

PATIENT
  Sex: Female
  Weight: 32.3 kg

DRUGS (8)
  1. FLUVACCIN [Concomitant]
     Active Substance: INFLUENZA VIRUS VACCINE
     Dates: start: 2018
  2. CORTENEMA [Concomitant]
     Active Substance: HYDROCORTISONE
     Dosage: 2 ENEMAS/100MG/60ML/ ONCE DAILY/ RECTALLY
     Route: 054
  3. REMICADE [Suspect]
     Active Substance: INFLIXIMAB
     Indication: COLITIS ULCERATIVE
     Route: 042
     Dates: start: 201811
  4. REMICADE [Suspect]
     Active Substance: INFLIXIMAB
     Route: 042
     Dates: start: 201904
  5. FLUVACCIN [Concomitant]
     Active Substance: INFLUENZA VIRUS VACCINE
     Dates: start: 2019
  6. RANITIDINE. [Concomitant]
     Active Substance: RANITIDINE
     Dosage: 6 ML/75MG/TSP/ TWICE DAILY/
     Route: 065
  7. FLONASE [Concomitant]
     Active Substance: FLUTICASONE PROPIONATE
     Dosage: 1 SPRAY IN EACH NOSTRIL/ ONCE DAILY/ ?
     Route: 065
  8. MESALAMINE. [Concomitant]
     Active Substance: MESALAMINE
     Route: 054

REACTIONS (6)
  - Upper respiratory tract infection [Unknown]
  - Colitis ulcerative [Unknown]
  - Product use issue [Unknown]
  - Chronic gastritis [Unknown]
  - Weight gain poor [Unknown]
  - Off label use [Unknown]

NARRATIVE: CASE EVENT DATE: 2018
